FAERS Safety Report 10428245 (Version 1)
Quarter: 2014Q3

REPORT INFORMATION
  Report Type: Spontaneous
  Country: US (occurrence: US)
  Receive Date: 20140903
  Receipt Date: 20140903
  Transmission Date: 20150326
  Serious: No
  Sender: FDA-Public Use
  Company Number: US-PFIZER INC-2014242407

PATIENT
  Sex: Female

DRUGS (1)
  1. EXEMESTANE. [Suspect]
     Active Substance: EXEMESTANE
     Dosage: UNK
     Dates: start: 2009

REACTIONS (3)
  - Tension headache [Recovered/Resolved]
  - Musculoskeletal stiffness [Recovered/Resolved]
  - Dizziness [Recovered/Resolved]
